FAERS Safety Report 10252050 (Version 5)
Quarter: 2016Q1

REPORT INFORMATION
  Report Type: Report from Study
  Country: CA (occurrence: CA)
  Receive Date: 20140623
  Receipt Date: 20160307
  Transmission Date: 20160525
  Serious: Yes (Hospitalization)
  Sender: FDA-Public Use
  Company Number: PHHY2014CA014083

PATIENT
  Age: 55 Year
  Sex: Male

DRUGS (4)
  1. SANDOSTATIN [Suspect]
     Active Substance: OCTREOTIDE ACETATE
     Indication: PANCREATIC FISTULA
     Dosage: 100 UG, ONCE/SINGLE (TEST DOSE)
     Route: 058
     Dates: start: 20140123, end: 20140123
  2. SANDOSTATIN LAR DEPOT [Suspect]
     Active Substance: OCTREOTIDE ACETATE
     Indication: PANCREATIC FISTULA
     Dosage: 20 MG, QMO
     Route: 030
     Dates: start: 20140221
  3. SANDOSTATIN [Suspect]
     Active Substance: OCTREOTIDE ACETATE
     Indication: PANCREATITIS ACUTE
     Dosage: 150 UG, TID  FOR 2 WEEKS
     Route: 058
     Dates: start: 20140127, end: 201402
  4. SANDOSTATIN LAR DEPOT [Suspect]
     Active Substance: OCTREOTIDE ACETATE
     Indication: PANCREATITIS ACUTE

REACTIONS (6)
  - Abdominal abscess [Unknown]
  - Urticaria [Unknown]
  - Product use issue [Unknown]
  - Pruritus [Unknown]
  - Injection site rash [Unknown]
  - Pancreatitis [Unknown]

NARRATIVE: CASE EVENT DATE: 201406
